FAERS Safety Report 7021099-2 (Version None)
Quarter: 2010Q3

REPORT INFORMATION
  Report Type: 
  Country: None (occurrence: None)
  Receive Date: 20100929
  Receipt Date: 20100527
  Transmission Date: 20110219
  Serious: Yes (Death, Hospitalization)
  Sender: FDA-Public Use
  Company Number: PHHO2010JP04552

PATIENT
  Sex: Female
  Weight: 44.9 kg

DRUGS (1)
  1. CGS 20267 T30748+TAB [Suspect]
     Indication: BREAST CANCER
     Dosage: 2.5 MG, QD
     Route: 048
     Dates: start: 20071106, end: 20091222

REACTIONS (8)
  - ALTERED STATE OF CONSCIOUSNESS [None]
  - HYPERCHOLESTEROLAEMIA [None]
  - INTRACRANIAL ANEURYSM [None]
  - MUSCULOSKELETAL STIFFNESS [None]
  - OSTEOPOROSIS [None]
  - RESPIRATORY ARREST [None]
  - SUBARACHNOID HAEMORRHAGE [None]
  - VENTRICULAR DRAINAGE [None]
